FAERS Safety Report 21404234 (Version 3)
Quarter: 2023Q1

REPORT INFORMATION
  Report Type: Spontaneous
  Country: US (occurrence: US)
  Receive Date: 20221003
  Receipt Date: 20230111
  Transmission Date: 20230418
  Serious: No
  Sender: FDA-Public Use
  Company Number: US-ALKERMES INC.-ALK-2022-004665

PATIENT
  Age: 34 Year
  Sex: Female
  Weight: 118.82 kg

DRUGS (6)
  1. ARISTADA [Suspect]
     Active Substance: ARIPIPRAZOLE LAUROXIL
     Indication: Schizoaffective disorder depressive type
     Dosage: 1064 MILLIGRAM, Q2MO
     Route: 030
     Dates: start: 20210923
  2. ARISTADA [Suspect]
     Active Substance: ARIPIPRAZOLE LAUROXIL
     Dosage: 662 MILLIGRAM, QMO
     Route: 030
     Dates: start: 20210326, end: 20210923
  3. CYMBALTA [Concomitant]
     Active Substance: DULOXETINE HYDROCHLORIDE
     Indication: Depression
     Dosage: 60 MILLIGRAM, BID
     Route: 048
     Dates: start: 20220301
  4. BUSPIRONE [Concomitant]
     Active Substance: BUSPIRONE HYDROCHLORIDE
     Indication: Anxiety
     Dosage: 30 MILLIGRAM, BID
     Route: 065
     Dates: start: 20220913, end: 20221206
  5. BUSPIRONE [Concomitant]
     Active Substance: BUSPIRONE HYDROCHLORIDE
     Dosage: 15 MILLIGRAM
     Route: 065
  6. BUSPIRONE [Concomitant]
     Active Substance: BUSPIRONE HYDROCHLORIDE
     Dosage: 10 MILLIGRAM
     Route: 065

REACTIONS (3)
  - Off label use [Recovered/Resolved]
  - Injection site scar [Not Recovered/Not Resolved]
  - Needle issue [Recovered/Resolved]

NARRATIVE: CASE EVENT DATE: 20220923
